FAERS Safety Report 13437363 (Version 1)
Quarter: 2017Q2

REPORT INFORMATION
  Report Type: Spontaneous
  Country: US (occurrence: US)
  Receive Date: 20170412
  Receipt Date: 20170412
  Transmission Date: 20170830
  Serious: No
  Sender: FDA-Public Use
  Company Number: US-SA-2016SA197510

PATIENT
  Age: 43 Year
  Sex: Male

DRUGS (2)
  1. ALLEGRA ALLERGY [Suspect]
     Active Substance: FEXOFENADINE HYDROCHLORIDE
     Indication: SINUSITIS
     Route: 048
     Dates: start: 20161025
  2. LORATADINE. [Concomitant]
     Active Substance: LORATADINE
     Route: 065

REACTIONS (3)
  - Extra dose administered [Unknown]
  - Dyspnoea [Not Recovered/Not Resolved]
  - Drug ineffective [Unknown]
